FAERS Safety Report 20939687 (Version 1)
Quarter: 2022Q2

REPORT INFORMATION
  Report Type: Spontaneous
  Country: US (occurrence: US)
  Receive Date: 20220609
  Receipt Date: 20220609
  Transmission Date: 20220720
  Serious: Yes (Other)
  Sender: FDA-Public Use
  Company Number: US-SUNOVION-2022SUN001713

PATIENT
  Age: 52 Year
  Sex: Female

DRUGS (2)
  1. APTIOM [Suspect]
     Active Substance: ESLICARBAZEPINE ACETATE
     Indication: Partial seizures
     Dosage: 1600 MG, QD (2 800 MG TABLETS TOGETHER)
     Route: 048
     Dates: start: 202110
  2. FYCOMPA [Concomitant]
     Active Substance: PERAMPANEL
     Indication: Seizure
     Dosage: 4 MG
     Route: 065

REACTIONS (8)
  - Haemorrhage [Not Recovered/Not Resolved]
  - Glaucoma [Unknown]
  - Haemoptysis [Not Recovered/Not Resolved]
  - Blood iron decreased [Recovered/Resolved]
  - Tongue exfoliation [Unknown]
  - Paranasal sinus hyposecretion [Recovered/Resolved]
  - Abdominal distension [Unknown]
  - Vein disorder [Unknown]

NARRATIVE: CASE EVENT DATE: 20211001
